FAERS Safety Report 23211355 (Version 1)
Quarter: 2023Q4

REPORT INFORMATION
  Report Type: Spontaneous
  Country: FR (occurrence: FR)
  Receive Date: 20231121
  Receipt Date: 20231121
  Transmission Date: 20240110
  Serious: Yes (Other)
  Sender: FDA-Public Use
  Company Number: None

PATIENT
  Sex: Female

DRUGS (2)
  1. FINTEPLA [Suspect]
     Active Substance: FENFLURAMINE
     Indication: Severe myoclonic epilepsy of infancy
     Dosage: UNK
  2. CANNABIDIOL [Suspect]
     Active Substance: CANNABIDIOL
     Indication: Severe myoclonic epilepsy of infancy
     Dosage: UNK

REACTIONS (1)
  - Fracture [Unknown]
